FAERS Safety Report 11110893 (Version 1)
Quarter: 2015Q2

REPORT INFORMATION
  Report Type: Spontaneous
  Country: US (occurrence: US)
  Receive Date: 20150513
  Receipt Date: 20150513
  Transmission Date: 20150821
  Serious: No
  Sender: FDA-Public Use
  Company Number: US-BAYER-2015-190889

PATIENT
  Sex: Female

DRUGS (1)
  1. OXYTROL FOR WOMEN [Suspect]
     Active Substance: OXYBUTYNIN
     Indication: HYPERTONIC BLADDER
     Dosage: ONCE EVERY FOUR DAYS
     Dates: start: 20150415, end: 20150429

REACTIONS (2)
  - Rash pruritic [Not Recovered/Not Resolved]
  - Pruritus generalised [None]

NARRATIVE: CASE EVENT DATE: 201504
